FAERS Safety Report 23666010 (Version 1)
Quarter: 2024Q1

REPORT INFORMATION
  Report Type: Spontaneous
  Country: CN (occurrence: CN)
  Receive Date: 20240323
  Receipt Date: 20240323
  Transmission Date: 20240410
  Serious: Yes (Other)
  Sender: FDA-Public Use
  Company Number: None

PATIENT
  Age: 51 Year
  Sex: Female
  Weight: 64 kg

DRUGS (4)
  1. CYCLOPHOSPHAMIDE [Suspect]
     Active Substance: CYCLOPHOSPHAMIDE
     Indication: Ovarian cancer
     Dosage: 0.8 G, ONE TIME IN ONE DAY, DILUTED WITH 60 ML OF 0.9% SODIUM CHLORIDE FOR ANTI-TUMOR TREATMENT, AT
     Route: 013
     Dates: start: 20240319, end: 20240319
  2. SODIUM CHLORIDE [Suspect]
     Active Substance: SODIUM CHLORIDE
     Indication: Medication dilution
     Dosage: (0.9%) 60 ML, ONE TIME IN ONE DAY, USED TO DILUTE 0.8 G PF CYCLOPHOSPHAMIDE, AT 9:30
     Route: 013
     Dates: start: 20240319, end: 20240319
  3. SODIUM CHLORIDE [Suspect]
     Active Substance: SODIUM CHLORIDE
     Dosage: (0.9%) 60 ML, ONE TIME IN ONE DAY, USED TO DILUTE 60 MG OF EPIRUBICIN HYDROCHLORIDE, AT 9:30
     Route: 013
     Dates: start: 20240319, end: 20240319
  4. EPIRUBICIN HYDROCHLORIDE [Suspect]
     Active Substance: EPIRUBICIN HYDROCHLORIDE
     Indication: Ovarian cancer
     Dosage: 60 MG, ONE TIME IN ONE DAY, DILUTED WITH 60 ML OF 0.9% SODIUM CHLORIDE FOR ANTI-TUMOR TREATMENT, AT
     Route: 013
     Dates: start: 20240319, end: 20240319

REACTIONS (3)
  - Muscle tightness [Recovering/Resolving]
  - Pyrexia [Recovering/Resolving]
  - Chills [Recovering/Resolving]

NARRATIVE: CASE EVENT DATE: 20240319
